FAERS Safety Report 24819878 (Version 1)
Quarter: 2025Q1

REPORT INFORMATION
  Report Type: Spontaneous
  Country: CA (occurrence: CA)
  Receive Date: 20250108
  Receipt Date: 20250108
  Transmission Date: 20250408
  Serious: Yes (Other)
  Sender: TAKEDA
  Company Number: CA-TAKEDA-2025TUS001882

PATIENT
  Sex: Female

DRUGS (1)
  1. ENTYVIO [Suspect]
     Active Substance: VEDOLIZUMAB
     Indication: Colitis ulcerative

REACTIONS (6)
  - Haematochezia [Unknown]
  - Dehydration [Unknown]
  - Focal nodular hyperplasia [Unknown]
  - Anxiety [Unknown]
  - Frequent bowel movements [Unknown]
  - Headache [Recovered/Resolved]
